FAERS Safety Report 5017303-2 (Version None)
Quarter: 2006Q2

REPORT INFORMATION
  Report Type: 
  Country: None (occurrence: None)
  Receive Date: 20060602
  Receipt Date: 20060523
  Transmission Date: 20061013
  Serious: Yes (Hospitalization, Other)
  Sender: FDA-Public Use
  Company Number: FR-ABBOTT-06P-056-0334022-00

PATIENT
  Sex: Female

DRUGS (6)
  1. KALETRA [Suspect]
     Indication: HIV INFECTION
  2. FLUTICASONE PROPIONATE [Suspect]
     Indication: DRUG USE FOR UNKNOWN INDICATION
     Route: 055
  3. ABACAVIR [Concomitant]
     Indication: HIV INFECTION
  4. ZIDOVUDINE [Concomitant]
     Indication: HIV INFECTION
  5. BACTRIM [Concomitant]
     Indication: DRUG USE FOR UNKNOWN INDICATION
  6. SALBUTAMOL [Concomitant]
     Indication: DRUG USE FOR UNKNOWN INDICATION
     Route: 055

REACTIONS (4)
  - ADRENAL INSUFFICIENCY [None]
  - CD4 LYMPHOCYTES DECREASED [None]
  - CUSHING'S SYNDROME [None]
  - VIRAL LOAD INCREASED [None]
